FAERS Safety Report 5975817-2 (Version None)
Quarter: 2008Q4

REPORT INFORMATION
  Report Type: 
  Country: None (occurrence: None)
  Receive Date: 20081202
  Receipt Date: 20080211
  Transmission Date: 20090506
  Serious: No
  Sender: FDA-Public Use
  Company Number: US-AMGEN-KDL264010

PATIENT
  Sex: Female

DRUGS (7)
  1. ENBREL [Suspect]
     Indication: ANKYLOSING SPONDYLITIS
     Route: 058
     Dates: start: 20071226, end: 20080204
  2. TRAZODONE HCL [Concomitant]
     Dates: start: 20071101
  3. ESTRADIOL [Concomitant]
     Dates: start: 20070301
  4. POTASSIUM CHLORIDE [Concomitant]
  5. FLEXERIL [Concomitant]
     Dates: start: 20071101
  6. MOBIC [Concomitant]
     Dates: start: 20080115
  7. UNSPECIFIED MEDICATION [Concomitant]

REACTIONS (3)
  - INSOMNIA [None]
  - PAROSMIA [None]
  - PELVIC PAIN [None]
